FAERS Safety Report 8984686 (Version 1)
Quarter: 2012Q4

REPORT INFORMATION
  Report Type: 
  Country: JP (occurrence: JP)
  Receive Date: 20121226
  Receipt Date: 20121226
  Transmission Date: 20130627
  Serious: Yes (Other)
  Sender: FDA-Public Use
  Company Number: JP-BAYER-2012-107562

PATIENT
  Age: 83 Year
  Sex: Female

DRUGS (14)
  1. GLUCOBAY [Suspect]
     Route: 048
  2. LYRICA [Concomitant]
     Route: 048
  3. ITRIZOLE [Concomitant]
     Route: 048
  4. BAKTAR [Concomitant]
     Route: 048
  5. MICARDIS [Concomitant]
     Dosage: UNK
     Route: 048
  6. JANUVIA [Concomitant]
     Dosage: UNK
     Route: 048
  7. FERROMIA [Concomitant]
     Route: 048
  8. MEVALOTIN [Concomitant]
     Route: 048
  9. FOLIAMIN [Concomitant]
     Route: 048
  10. ACTONEL [Concomitant]
     Dosage: UNK
     Route: 048
  11. CELECOXIB [Concomitant]
     Dosage: UNK
     Route: 048
  12. PARIET [Concomitant]
     Dosage: UNK
     Route: 048
  13. RHEUMATREX [Concomitant]
     Dosage: UNK
     Route: 048
  14. LOXONIN [Concomitant]

REACTIONS (2)
  - Hypoglycaemia [Recovered/Resolved]
  - Herpes zoster [None]
